FAERS Safety Report 4960288-5 (Version None)
Quarter: 2006Q1

REPORT INFORMATION
  Report Type: 
  Country: None (occurrence: None)
  Receive Date: 20060328
  Receipt Date: 20060321
  Transmission Date: 20060701
  Serious: Yes (Hospitalization)
  Sender: FDA-Public Use
  Company Number: 2006040219

PATIENT
  Sex: Female

DRUGS (2)
  1. EPELIN KAPSEALS (PHENYTOIN SODIUM) [Suspect]
     Indication: ILL-DEFINED DISORDER
     Dosage: 400 MG (EVERY DAY) ORAL
     Route: 048
     Dates: start: 19760101
  2. HIDANTAL (PHENYTOIN) [Suspect]
     Indication: ILL-DEFINED DISORDER

REACTIONS (2)
  - BALANCE DISORDER [None]
  - MALAISE [None]
